FAERS Safety Report 18139329 (Version 1)
Quarter: 2020Q3

REPORT INFORMATION
  Report Type: Spontaneous
  Country: US (occurrence: US)
  Receive Date: 20200812
  Receipt Date: 20200812
  Transmission Date: 20201103
  Serious: No
  Sender: FDA-Public Use
  Company Number: US-BAUSCH-BL-2020-022535

PATIENT
  Age: 50 Year
  Sex: Female
  Weight: 68.1 kg

DRUGS (2)
  1. LUMIFY [Suspect]
     Active Substance: BRIMONIDINE TARTRATE
     Indication: DRY EYE
     Dosage: 2 DROPS IN EACH EYE IN MORNING, AFTERNOON, LAST DOSE WAS LAST WEEK AROUND 29/JUL/2020 OR 30/JUL/2020
     Route: 047
     Dates: start: 202007, end: 202007
  2. LUMIFY [Suspect]
     Active Substance: BRIMONIDINE TARTRATE
     Indication: PRODUCT USE IN UNAPPROVED INDICATION

REACTIONS (2)
  - Blepharospasm [Recovering/Resolving]
  - Product use in unapproved indication [Unknown]

NARRATIVE: CASE EVENT DATE: 202007
